FAERS Safety Report 16476747 (Version 1)
Quarter: 2019Q2

REPORT INFORMATION
  Report Type: Spontaneous
  Country: US (occurrence: US)
  Receive Date: 20190626
  Receipt Date: 20190626
  Transmission Date: 20190711
  Serious: No
  Sender: FDA-Public Use
  Company Number: US-ASTRAZENECA-2019SE82039

PATIENT
  Age: 86 Year
  Sex: Female

DRUGS (1)
  1. FASENRA [Suspect]
     Active Substance: BENRALIZUMAB
     Indication: ASTHMA
     Dosage: 30 MG/ML ONE DOSE EVERY FOUR WEEKS FOR THE FIRST THREE DOSES AND THEN EVERY EIGHT
     Route: 058
     Dates: start: 201809

REACTIONS (4)
  - Intentional product misuse [Unknown]
  - Product dose omission [Unknown]
  - Muscle fatigue [Unknown]
  - Rash [Unknown]
